FAERS Safety Report 4337510-1 (Version None)
Quarter: 2004Q2

REPORT INFORMATION
  Report Type: 
  Country: None (occurrence: None)
  Receive Date: 20040413
  Receipt Date: 20030929
  Transmission Date: 20050107
  Serious: Yes (Hospitalization, Other)
  Sender: FDA-Public Use
  Company Number: US-GLAXOSMITHKLINE-A0428282A

PATIENT
  Age: 40 Year
  Sex: Female

DRUGS (4)
  1. PAXIL [Suspect]
     Indication: DEPRESSION
     Dosage: 10MG PER DAY
     Route: 048
     Dates: start: 19971007
  2. PEPCID [Concomitant]
  3. ZYRTEC [Concomitant]
  4. NEURONTIN [Concomitant]
     Dosage: 300MG AT NIGHT
     Route: 048

REACTIONS (30)
  - ALOPECIA [None]
  - AMNESIA [None]
  - ANXIETY [None]
  - ARTHRALGIA [None]
  - ASTHENIA [None]
  - BACK PAIN [None]
  - BLADDER DISORDER [None]
  - CHEST PAIN [None]
  - CHEST WALL PAIN [None]
  - DEAFNESS [None]
  - DYSPNOEA [None]
  - FATIGUE [None]
  - HYPERAESTHESIA [None]
  - HYPOAESTHESIA [None]
  - HYSTERECTOMY [None]
  - INSOMNIA [None]
  - INTENTIONAL OVERDOSE [None]
  - NEUROPATHY [None]
  - PAIN [None]
  - PAIN IN EXTREMITY [None]
  - PARAESTHESIA [None]
  - PHOTOSENSITIVITY REACTION [None]
  - RADIAL TUNNEL SYNDROME [None]
  - RADICULOPATHY [None]
  - SEXUAL DYSFUNCTION [None]
  - TENDERNESS [None]
  - TINNITUS [None]
  - UPPER RESPIRATORY TRACT INFECTION [None]
  - VULVOVAGINAL DRYNESS [None]
  - WEIGHT INCREASED [None]
